FAERS Safety Report 11094171 (Version 1)
Quarter: 2015Q2

REPORT INFORMATION
  Report Type: Spontaneous
  Country: US (occurrence: US)
  Receive Date: 20150506
  Receipt Date: 20150506
  Transmission Date: 20150821
  Serious: Yes (Other)
  Sender: FDA-Public Use
  Company Number: US-GLAXOSMITHKLINE-US2015GSK059920

PATIENT
  Sex: Female

DRUGS (1)
  1. ADVAIR DISKUS [Suspect]
     Active Substance: FLUTICASONE PROPIONATE\SALMETEROL XINAFOATE
     Indication: LUNG DISORDER
     Dosage: UNK, U
     Dates: start: 2007

REACTIONS (3)
  - Abasia [Unknown]
  - Dyspnoea [Unknown]
  - Blindness unilateral [Unknown]
